FAERS Safety Report 21159752 (Version 1)
Quarter: 2022Q3

REPORT INFORMATION
  Report Type: Spontaneous
  Country: US (occurrence: US)
  Receive Date: 20220802
  Receipt Date: 20220802
  Transmission Date: 20221027
  Serious: Yes (Hospitalization, Other)
  Sender: FDA-Public Use
  Company Number: US-AUROBINDO-AUR-APL-2022-030187

PATIENT
  Age: 21 Year
  Sex: Male

DRUGS (14)
  1. FLUPHENAZINE DECANOATE [Suspect]
     Active Substance: FLUPHENAZINE DECANOATE
     Indication: Schizophrenia
     Dosage: UNK, 25 MG INJECTION EVERY 2 WEEKS
     Route: 065
  2. CLOZAPINE [Suspect]
     Active Substance: CLOZAPINE
     Indication: Schizophrenia
     Dosage: 50 MILLIGRAM, ONCE A DAY
     Route: 065
  3. TRAZODONE [Suspect]
     Active Substance: TRAZODONE HYDROCHLORIDE
     Indication: Schizophrenia
     Dosage: 50 MILLIGRAM, EVERY NIGHT
     Route: 065
  4. BENZTROPINE [Suspect]
     Active Substance: BENZTROPINE
     Indication: Schizophrenia
     Dosage: 2 MILLIGRAM, EVERY NIGHT
     Route: 065
  5. LITHIUM [Suspect]
     Active Substance: LITHIUM
     Indication: Schizophrenia
     Dosage: 300 MILLIGRAM, TWO TIMES A DAY
     Route: 065
  6. ACYCLOVIR [Concomitant]
     Active Substance: ACYCLOVIR
     Indication: Encephalitis
     Dosage: 900 MILLIGRAM, 3 TIMES A DAY
     Route: 065
  7. AMPICILLIN SODIUM\SULBACTAM SODIUM [Concomitant]
     Active Substance: AMPICILLIN SODIUM\SULBACTAM SODIUM
     Indication: Product used for unknown indication
     Dosage: UNK
     Route: 065
  8. CEFTRIAXONE [Concomitant]
     Active Substance: CEFTRIAXONE
     Indication: Encephalitis
     Dosage: 2 GRAM, ONCE A DAY
     Route: 065
  9. HALOPERIDOL [Concomitant]
     Active Substance: HALOPERIDOL
     Indication: Schizophrenia
     Dosage: 2 MILLIGRAM
     Route: 042
  10. HALOPERIDOL [Concomitant]
     Active Substance: HALOPERIDOL
     Indication: Agitation
  11. PALIPERIDONE PALMITATE [Concomitant]
     Active Substance: PALIPERIDONE PALMITATE
     Indication: Schizophrenia
     Dosage: UNK
     Route: 065
  12. RISPERIDONE [Concomitant]
     Active Substance: RISPERIDONE
     Indication: Schizophrenia
     Dosage: UNK
     Route: 065
  13. VALPROIC ACID [Concomitant]
     Active Substance: VALPROIC ACID
     Indication: Schizophrenia
     Dosage: UNK
     Route: 065
  14. VANCOMYCIN [Concomitant]
     Active Substance: VANCOMYCIN
     Indication: Encephalitis
     Dosage: 1.75 GRAM, TWO TIMES A DAY
     Route: 065

REACTIONS (1)
  - Neuroleptic malignant syndrome [Unknown]
